FAERS Safety Report 8554082-6 (Version None)
Quarter: 2012Q3

REPORT INFORMATION
  Report Type: 
  Country: None (occurrence: None)
  Receive Date: 20120731
  Receipt Date: 20120720
  Transmission Date: 20120928
  Serious: Yes (Life-Threatening)
  Sender: FDA-Public Use
  Company Number: US-BRISTOL-MYERS SQUIBB COMPANY-16788820

PATIENT
  Sex: Male

DRUGS (2)
  1. SUSTIVA [Suspect]
  2. ATRIPLA [Suspect]

REACTIONS (1)
  - ADVERSE EVENT [None]
